FAERS Safety Report 8054608-5 (Version None)
Quarter: 2012Q1

REPORT INFORMATION
  Report Type: 
  Country: None (occurrence: None)
  Receive Date: 20120119
  Receipt Date: 20120110
  Transmission Date: 20120608
  Serious: No
  Sender: FDA-Public Use
  Company Number: US-BIOGENIDEC-2012BI001291

PATIENT
  Sex: Male

DRUGS (1)
  1. AVONEX [Suspect]
     Indication: MULTIPLE SCLEROSIS
     Route: 030
     Dates: start: 20091014

REACTIONS (5)
  - HYPOTENSION [None]
  - BLOOD CHOLESTEROL INCREASED [None]
  - SCHIZOPHRENIA [None]
  - GASTROOESOPHAGEAL REFLUX DISEASE [None]
  - CONSTIPATION [None]
